FAERS Safety Report 4376290-0 (Version None)
Quarter: 2004Q2

REPORT INFORMATION
  Report Type: 
  Country: None (occurrence: None)
  Receive Date: 20040608
  Receipt Date: 20031124
  Transmission Date: 20050107
  Serious: Yes (Other)
  Sender: FDA-Public Use
  Company Number: 200314390BCC

PATIENT
  Age: 58 Year
  Sex: Female

DRUGS (8)
  1. ALEVE [Suspect]
     Indication: BACK DISORDER
     Dosage: 220 MG, TID, ORAL
     Route: 048
     Dates: start: 20031121, end: 20031123
  2. PROTONIX [Concomitant]
  3. PREMPRO [Concomitant]
  4. ALDACTONE [Concomitant]
  5. LEVOXYL [Concomitant]
  6. ZYRTEC [Concomitant]
  7. ATENOLOL [Concomitant]
  8. LIPITOR [Concomitant]

REACTIONS (2)
  - DIARRHOEA [None]
  - HAEMATOCHEZIA [None]
